FAERS Safety Report 4964870-0 (Version None)
Quarter: 2006Q2

REPORT INFORMATION
  Report Type: 
  Country: None (occurrence: None)
  Receive Date: 20060403
  Receipt Date: 20060321
  Transmission Date: 20061013
  Serious: Yes (Hospitalization)
  Sender: FDA-Public Use
  Company Number: HQWYE218108MAR06

PATIENT
  Age: 20 Year
  Sex: Male

DRUGS (4)
  1. CYCLOSPORINE [Suspect]
     Indication: PROPHYLAXIS AGAINST TRANSPLANT REJECTION
     Dosage: 225 MG 1X PER 1 DAY, ORAL
     Route: 048
     Dates: start: 20051106, end: 20060314
  2. MYCOPHENOLATE MOFETIL [Concomitant]
  3. CEFUROXIME AXETIL [Concomitant]
  4. ATENOLOL [Concomitant]

REACTIONS (4)
  - DIALYSIS [None]
  - DRUG INEFFECTIVE [None]
  - KIDNEY TRANSPLANT REJECTION [None]
  - OBSTRUCTIVE UROPATHY [None]
